FAERS Safety Report 8816455 (Version 1)
Quarter: 2012Q4

REPORT INFORMATION
  Report Type: Spontaneous
  Country: US (occurrence: None)
  Receive Date: 20120927
  Receipt Date: 20120927
  Transmission Date: 20130627
  Serious: Yes (Death)
  Sender: FDA-Public Use
  Company Number: DKLU1084762

PATIENT
  Age: 55 Year
  Sex: Male

DRUGS (1)
  1. SABRIL (TABLET) (SABRIL) (VIGABATRIN) (500 MG, TABLET) [Suspect]
     Indication: COMPLEX PARTIAL SEIZURES
     Dosage: 500 mg milligram(s), 2 in 1 D, Oral
     Route: 048
     Dates: start: 20101216

REACTIONS (1)
  - Death [None]
